FAERS Safety Report 4882690-2 (Version None)
Quarter: 2006Q1

REPORT INFORMATION
  Report Type: 
  Country: None (occurrence: None)
  Receive Date: 20060113
  Receipt Date: 20060105
  Transmission Date: 20060701
  Serious: Yes (Other)
  Sender: FDA-Public Use
  Company Number: USA-2005-0020611

PATIENT
  Age: 52 Year
  Sex: Male

DRUGS (3)
  1. OXYCONTIN [Suspect]
     Indication: PAIN
     Dosage: 80 MG, QID, ORAL
     Route: 048
     Dates: start: 20001202
  2. CYMBALTA [Concomitant]
  3. DILTIAZEM [Concomitant]

REACTIONS (22)
  - ABDOMINAL PAIN [None]
  - ALOPECIA [None]
  - BLOOD PRESSURE INCREASED [None]
  - BLOOD TESTOSTERONE DECREASED [None]
  - BONE PAIN [None]
  - DIARRHOEA [None]
  - DRUG TOLERANCE [None]
  - DRUG WITHDRAWAL SYNDROME [None]
  - DYSKINESIA [None]
  - DYSPHAGIA [None]
  - FATIGUE [None]
  - HEAD DISCOMFORT [None]
  - HEPATIC PAIN [None]
  - HYPERSOMNIA [None]
  - HYPOTHALAMO-PITUITARY DISORDERS [None]
  - INADEQUATE ANALGESIA [None]
  - LABILE BLOOD PRESSURE [None]
  - MUSCLE TWITCHING [None]
  - PAIN [None]
  - PAIN IN EXTREMITY [None]
  - RETCHING [None]
  - SENSORY DISTURBANCE [None]
